FAERS Safety Report 9252915 (Version 1)
Quarter: 2013Q1

REPORT INFORMATION
  Report Type: Spontaneous
  Country: US (occurrence: None)
  Receive Date: 20130305
  Receipt Date: 20130305
  Transmission Date: 20140127
  Serious: Yes (Disabling)
  Sender: FDA-Public Use
  Company Number: 163-201880-12090889

PATIENT
  Age: 58 Year
  Sex: Female
  Weight: 58.97 kg

DRUGS (17)
  1. REVLIMID [Suspect]
     Indication: PLASMA CELL MYELOMA
     Dosage: 21 IN 21 D
     Route: 048
     Dates: start: 201209
  2. ACYCLOVIR (ACICLOVIR) (ACICLOVIR) [Suspect]
  3. AREDIA [Suspect]
  4. ASPIRIN (ACETYLSALICYLIC ACID) [Suspect]
  5. ATIVAN (LORAZEPAM) [Suspect]
  6. POLLEN-EZE [Suspect]
  7. COQ10 (UBIDECARENONE) [Suspect]
  8. DEXAMETHASONE (DEXAMETHASONE) [Suspect]
  9. DILAUDID (HYDROMORPHONE HYDROCHLORIDE) [Suspect]
  10. FLEXERIL (CYCLOBENZAPRINE HYDROCHLORIDE) [Suspect]
  11. FLUCONAZOLE (FLUCONAZOLE) [Suspect]
  12. VITAMINS [Suspect]
  13. RESVERATROL [Suspect]
  14. TURMERIC [Suspect]
  15. VITAMIN D (ERGOCALCIFEROL) [Suspect]
  16. VITAMIN B12 (CYANOCOBALAMIN) [Suspect]
  17. VITAMIN C [Suspect]

REACTIONS (2)
  - Fatigue [None]
  - Plasma cell myeloma recurrent [None]
